FAERS Safety Report 13787915 (Version 3)
Quarter: 2017Q3

REPORT INFORMATION
  Report Type: Spontaneous
  Country: US (occurrence: US)
  Receive Date: 20170725
  Receipt Date: 20170804
  Transmission Date: 20171127
  Serious: Yes (Other)
  Sender: FDA-Public Use
  Company Number: ALCN2017US004618

PATIENT
  Sex: Female

DRUGS (1)
  1. SYSTANE ULTRA [Suspect]
     Active Substance: POLYETHYLENE GLYCOL 400\PROPYLENE GLYCOL
     Indication: EYE LUBRICATION THERAPY
     Dosage: UNK
     Route: 047
     Dates: end: 20170721

REACTIONS (5)
  - Eye irritation [Unknown]
  - Visual impairment [Unknown]
  - Chemical eye injury [Unknown]
  - Ocular hyperaemia [Unknown]
  - Eye allergy [Unknown]
